FAERS Safety Report 15666403 (Version 1)
Quarter: 2018Q4

REPORT INFORMATION
  Report Type: Spontaneous
  Country: CN (occurrence: CN)
  Receive Date: 20181128
  Receipt Date: 20181128
  Transmission Date: 20190205
  Serious: Yes (Hospitalization, Other)
  Sender: FDA-Public Use
  Company Number: CN-SA-2018SA005286

PATIENT
  Age: 67 Year
  Sex: Male
  Weight: 60 kg

DRUGS (3)
  1. TRIMETAZIDINE HYDROCHLORIDE [Concomitant]
     Active Substance: TRIMETAZIDINE DIHYDROCHLORIDE
     Dosage: UNK UNK,UNK
     Route: 048
  2. PLAVIX [Suspect]
     Active Substance: CLOPIDOGREL BISULFATE
     Indication: STENT PLACEMENT
     Dosage: 75 MG,QD
     Route: 048
     Dates: start: 201705, end: 201709
  3. ACETYLSALICYLIC ACID [Suspect]
     Active Substance: ASPIRIN
     Indication: STENT PLACEMENT
     Dosage: 1 DF, QD
     Route: 048
     Dates: start: 201705, end: 201712

REACTIONS (7)
  - Weight decreased [Unknown]
  - Gastrointestinal ulcer [Not Recovered/Not Resolved]
  - Shock [Recovering/Resolving]
  - Product counterfeit [Unknown]
  - Haematochezia [Recovering/Resolving]
  - Feeding disorder [Recovering/Resolving]
  - Ulcer [Not Recovered/Not Resolved]

NARRATIVE: CASE EVENT DATE: 201707
